FAERS Safety Report 5694861-6 (Version None)
Quarter: 2008Q2

REPORT INFORMATION
  Report Type: 
  Country: None (occurrence: None)
  Receive Date: 20080404
  Receipt Date: 20071219
  Transmission Date: 20081010
  Serious: No
  Sender: FDA-Public Use
  Company Number: A0699777A

PATIENT
  Sex: Female

DRUGS (2)
  1. ADVAIR HFA [Suspect]
     Indication: CHRONIC OBSTRUCTIVE PULMONARY DISEASE
     Dosage: 2PUFF TWICE PER DAY
     Route: 055
     Dates: start: 20070601
  2. ALBUTEROL [Concomitant]

REACTIONS (2)
  - COUGH [None]
  - DYSPNOEA [None]
